FAERS Safety Report 6619311-4 (Version None)
Quarter: 2010Q1

REPORT INFORMATION
  Report Type: 
  Country: None (occurrence: None)
  Receive Date: 20100303
  Receipt Date: 20100218
  Transmission Date: 20100710
  Serious: Yes (Life-Threatening, Hospitalization, Other)
  Sender: FDA-Public Use
  Company Number: 005840

PATIENT
  Age: 83 Year
  Sex: Female

DRUGS (14)
  1. MACUGEN [Suspect]
     Indication: MACULAR DEGENERATION
     Dates: start: 20090928, end: 20091109
  2. MACUGEN [Suspect]
  3. PLAVIX [Concomitant]
  4. DYNACIL (FOSINOPRIL SODIUM) [Concomitant]
  5. METOPROLOL SUCCINATE [Concomitant]
  6. HYDROCHLOROTHIAZIDE [Concomitant]
  7. DIGITOXIN INJ [Concomitant]
  8. PENTAERYTHIRITOL TETRANITRATE TAB [Concomitant]
  9. FUROSEMIDE [Concomitant]
  10. FLOXAL EYEDROPS (BENZALKONIUM TETRANITRATE) [Concomitant]
  11. TROPICAMIDE [Concomitant]
  12. NEO-SYNEPHRINE OPHTHALMICS (PHENYLEPHRINE HYDROCHLORIDE) [Concomitant]
  13. PROPARAKAIN-POS (PROXYMETACAINE HYDROCHLORIDE) [Concomitant]
  14. POVIDONE IODINE [Concomitant]

REACTIONS (1)
  - CEREBROVASCULAR ACCIDENT [None]
